FAERS Safety Report 11746247 (Version 1)
Quarter: 2015Q4

REPORT INFORMATION
  Report Type: Spontaneous
  Country: GB (occurrence: GB)
  Receive Date: 20151117
  Receipt Date: 20151117
  Transmission Date: 20160304
  Serious: Yes (Life-Threatening)
  Sender: FDA-Public Use
  Company Number: GB-JNJFOC-20151107297

PATIENT
  Age: 8 Week
  Sex: Male
  Weight: 4.9 kg

DRUGS (6)
  1. PREVNAR 13 [Suspect]
     Active Substance: PNEUMOCOCCAL 13-VALENT CONJUGATE VACCINE
     Indication: IMMUNISATION
     Dosage: 0.5 (UNIT UNSPECIFIED)
     Route: 065
     Dates: start: 20151026, end: 20151026
  2. DTPA IPV HIB VACCINE [Suspect]
     Active Substance: DIPHTHERIA AND TETANUS TOXOIDS AND ACELLULAR PERTUSSIS ADSORBED, INACTIVATED POLIOVIRUS AND HAEMOPHILUS B CONJUGATE (TETANUS TOXOID CONJUGATE) VACCINE
     Indication: IMMUNISATION
     Dosage: 0.5 (UNIT UNSPECIFIED)
     Route: 065
     Dates: start: 20151026, end: 20151026
  3. CALPOL [Suspect]
     Active Substance: ACETAMINOPHEN
     Route: 065
  4. BEXSERO [Suspect]
     Active Substance: MENINGOCOCCAL GROUP B VACCINE
     Indication: IMMUNISATION
     Dosage: 0.5 (UNIT UNSPECIFIED)
     Route: 065
     Dates: start: 20151026, end: 20151026
  5. CALPOL [Suspect]
     Active Substance: ACETAMINOPHEN
     Indication: PRODUCT USED FOR UNKNOWN INDICATION
     Dosage: CONTAINS 120 MG PARACETAMOL AND MALTITOL ,E420, E218, E216, E214 AND E122
     Route: 065
     Dates: start: 20151026, end: 20151026
  6. ROTARIX [Suspect]
     Active Substance: HUMAN ROTAVIRUS A TYPE G1P(8) STRAIN RIX4414 LIVE ANTIGEN
     Indication: IMMUNISATION
     Dosage: 1.5 (UNIT UNSPECIFIED)
     Route: 065
     Dates: start: 20151026, end: 20151026

REACTIONS (1)
  - Anaphylactic reaction [Recovered/Resolved]

NARRATIVE: CASE EVENT DATE: 20151026
